FAERS Safety Report 10359658 (Version 1)
Quarter: 2014Q3

REPORT INFORMATION
  Report Type: Spontaneous
  Country: US (occurrence: US)
  Receive Date: 20140804
  Receipt Date: 20140804
  Transmission Date: 20150326
  Serious: No
  Sender: FDA-Public Use
  Company Number: US-PFIZER INC-2014213467

PATIENT
  Age: 66 Year
  Sex: Male

DRUGS (1)
  1. NITROSTAT [Suspect]
     Active Substance: NITROGLYCERIN
     Dosage: 0.4 MG, AS NEEDED
     Route: 048
     Dates: start: 20140408

REACTIONS (2)
  - Burning sensation [Recovered/Resolved]
  - Paraesthesia [Recovered/Resolved]

NARRATIVE: CASE EVENT DATE: 2014
